FAERS Safety Report 6853526-5 (Version None)
Quarter: 2010Q3

REPORT INFORMATION
  Report Type: 
  Country: None (occurrence: None)
  Receive Date: 20100717
  Receipt Date: 20071212
  Transmission Date: 20110219
  Serious: No
  Sender: FDA-Public Use
  Company Number: US-PFIZER INC-2007105318

PATIENT
  Sex: Female
  Weight: 79.5 kg

DRUGS (12)
  1. CHANTIX [Suspect]
     Indication: SMOKING CESSATION THERAPY
     Dates: start: 20071201
  2. PREVACID [Concomitant]
  3. ACETYLSALICYLIC ACID [Concomitant]
  4. DOSS [Concomitant]
  5. CALCIUM [Concomitant]
  6. PROMETHAZINE [Concomitant]
  7. VALIUM [Concomitant]
  8. NORTRIPTYLINE [Concomitant]
  9. MS CONTIN [Concomitant]
  10. ZOCOR [Concomitant]
  11. DILAUDID [Concomitant]
  12. SYNTHROID [Concomitant]

REACTIONS (2)
  - MUSCULOSKELETAL PAIN [None]
  - RASH [None]
